FAERS Safety Report 5152451-8 (Version None)
Quarter: 2006Q4

REPORT INFORMATION
  Report Type: 
  Country: None (occurrence: None)
  Receive Date: 20061109
  Receipt Date: 20061101
  Transmission Date: 20070319
  Serious: Yes (Death, Hospitalization)
  Sender: FDA-Public Use
  Company Number: CERZ-10570

PATIENT
  Age: 15 Month
  Sex: Male
  Weight: 6 kg

DRUGS (11)
  1. CEREZYME [Suspect]
     Indication: GAUCHER'S DISEASE
     Dosage: 800 UNITS Q2WKS, IV
     Route: 042
     Dates: start: 20031127, end: 20040401
  2. CEREZYME [Suspect]
     Indication: GAUCHER'S DISEASE
     Dosage: 1200 UNITS Q2WKS; IV
     Route: 042
     Dates: start: 20030716, end: 20031127
  3. CEREZYME [Suspect]
     Indication: GAUCHER'S DISEASE
     Dosage: 88.9 U/KG Q2WKS; IV
     Route: 042
     Dates: start: 20021121, end: 20030629
  4. ZONISAMIDE [Concomitant]
  5. PHENOBARBITAL TAB [Concomitant]
  6. ERYTHROMYCIN [Concomitant]
  7. DANTROLENE SODIUM [Concomitant]
  8. CLONAZEPAM [Concomitant]
  9. BROMHEXINE HYDROCHLORIDE [Concomitant]
  10. SODIUM CHLORIDE [Concomitant]
  11. DIAZEPAM [Concomitant]

REACTIONS (6)
  - APNOEA [None]
  - CONCOMITANT DISEASE PROGRESSION [None]
  - NERVOUS SYSTEM DISORDER [None]
  - PNEUMONIA [None]
  - RESPIRATORY FAILURE [None]
  - STATUS EPILEPTICUS [None]
